FAERS Safety Report 9553018 (Version 2)
Quarter: 2014Q1

REPORT INFORMATION
  Report Type: Spontaneous
  Country: NL (occurrence: NL)
  Receive Date: 20130925
  Receipt Date: 20140210
  Transmission Date: 20141002
  Serious: Yes (Other)
  Sender: FDA-Public Use
  Company Number: NL-UCBSA-098877

PATIENT
  Age: 11 Year
  Sex: Male

DRUGS (2)
  1. METHYLPHENIDATE HYDROCHLORIDE [Suspect]
     Route: 048
  2. ARIPIPRAZOLE [Concomitant]

REACTIONS (3)
  - Torticollis [Recovered/Resolved]
  - Dysarthria [Recovered/Resolved]
  - Muscle rigidity [Recovered/Resolved]
